FAERS Safety Report 7699612-1 (Version None)
Quarter: 2011Q3

REPORT INFORMATION
  Report Type: 
  Country: None (occurrence: None)
  Receive Date: 20110822
  Receipt Date: 20101013
  Transmission Date: 20111222
  Serious: No
  Sender: FDA-Public Use
  Company Number: US-BIOGENIDEC-2010BI006549

PATIENT
  Sex: Female

DRUGS (1)
  1. TYSABRI [Suspect]
     Indication: MULTIPLE SCLEROSIS
     Route: 042
     Dates: start: 20090922

REACTIONS (4)
  - MEMORY IMPAIRMENT [None]
  - SOMNOLENCE [None]
  - FATIGUE [None]
  - GAIT DISTURBANCE [None]
